FAERS Safety Report 5268139-9 (Version None)
Quarter: 2007Q1

REPORT INFORMATION
  Report Type: 
  Country: None (occurrence: None)
  Receive Date: 20070319
  Receipt Date: 20070308
  Transmission Date: 20070707
  Serious: Yes (Death)
  Sender: FDA-Public Use
  Company Number: US-ELI_LILLY_AND_COMPANY-US200703001772

PATIENT
  Age: 38 Year

DRUGS (1)
  1. ZYPREXA [Suspect]

REACTIONS (1)
  - DRUG TOXICITY [None]
